FAERS Safety Report 9288758 (Version 1)
Quarter: 2013Q2

REPORT INFORMATION
  Report Type: Spontaneous
  Country: US (occurrence: US)
  Receive Date: 20130508
  Receipt Date: 20130508
  Transmission Date: 20140414
  Serious: Yes (Hospitalization, Other)
  Sender: FDA-Public Use
  Company Number: US-009507513-1305USA003634

PATIENT
  Sex: Female

DRUGS (1)
  1. NUVARING [Suspect]
     Dosage: UNK
     Route: 067
     Dates: start: 200902, end: 200906

REACTIONS (3)
  - Caesarean section [Unknown]
  - Staphylococcus test positive [Unknown]
  - Maternal exposure before pregnancy [Recovered/Resolved]
